FAERS Safety Report 9916228 (Version 2)
Quarter: 2014Q1

REPORT INFORMATION
  Report Type: Spontaneous
  Country: US (occurrence: US)
  Receive Date: 20140221
  Receipt Date: 20140221
  Transmission Date: 20141002
  Serious: Yes (Disabling, Other)
  Sender: FDA-Public Use
  Company Number: US-GE HEALTHCARE MEDICAL DIAGNOSTICS-OSCN-PR-0802S-0058

PATIENT
  Age: 55 Year
  Sex: Male

DRUGS (7)
  1. OMNISCAN [Suspect]
     Indication: BLOOD CREATININE INCREASED
     Route: 042
     Dates: start: 20020924, end: 20020924
  2. OMNISCAN [Suspect]
     Indication: RENAL VEIN OCCLUSION
     Route: 042
     Dates: start: 20020925, end: 20020925
  3. OMNISCAN [Suspect]
     Indication: CONGENITAL CYSTIC KIDNEY DISEASE
     Route: 042
     Dates: start: 20020930, end: 20020930
  4. MAGNEVIST [Suspect]
     Indication: NEPHRECTOMY
     Route: 042
     Dates: start: 20031021, end: 20031021
  5. MAGNEVIST [Suspect]
     Indication: RENAL TRANSPLANT
     Route: 042
     Dates: start: 20050817, end: 20050817
  6. PROHANCE [Suspect]
     Indication: HEADACHE
     Route: 042
     Dates: start: 20011206, end: 20011206
  7. PROHANCE [Suspect]
     Indication: NAUSEA

REACTIONS (1)
  - Nephrogenic systemic fibrosis [Not Recovered/Not Resolved]
